FAERS Safety Report 20089096 (Version 1)
Quarter: 2021Q4

REPORT INFORMATION
  Report Type: Spontaneous
  Country: US (occurrence: None)
  Receive Date: 20211119
  Receipt Date: 20211119
  Transmission Date: 20220303
  Serious: Yes (Hospitalization, Other)
  Sender: FDA-Public Use
  Company Number: PR-MLMSERVICE-20211101-3187193-1

PATIENT
  Age: 39 Year
  Sex: Male

DRUGS (1)
  1. BUPRENORPHINE AND NALOXONE [Suspect]
     Active Substance: BUPRENORPHINE HYDROCHLORIDE\NALOXONE HYDROCHLORIDE
     Indication: Product used for unknown indication
     Dosage: UNKNOWN
     Route: 013

REACTIONS (6)
  - Vasoconstriction [Recovered/Resolved]
  - Self-medication [Recovered/Resolved]
  - Incorrect route of product administration [Recovered/Resolved]
  - Peripheral ischaemia [Recovered/Resolved]
  - Skin discolouration [Recovered/Resolved]
  - Drug abuse [Unknown]
